FAERS Safety Report 10949597 (Version 1)
Quarter: 2015Q1

REPORT INFORMATION
  Report Type: Spontaneous
  Country: US (occurrence: None)
  Receive Date: 20150323
  Receipt Date: 20150323
  Transmission Date: 20150721
  Serious: No
  Sender: FDA-Public Use
  Company Number: None

PATIENT
  Age: 44 Year
  Sex: Female

DRUGS (1)
  1. COPAXONE [Suspect]
     Active Substance: GLATIRAMER ACETATE
     Indication: MULTIPLE SCLEROSIS
     Dosage: ABOUT 1 YEAR
     Route: 058

REACTIONS (3)
  - Hallucination, auditory [None]
  - Amnesia [None]
  - Hallucination [None]

NARRATIVE: CASE EVENT DATE: 20150202
